FAERS Safety Report 21856848 (Version 2)
Quarter: 2023Q1

REPORT INFORMATION
  Report Type: Spontaneous
  Country: US (occurrence: US)
  Receive Date: 20230113
  Receipt Date: 20230116
  Transmission Date: 20230418
  Serious: Yes (Other)
  Sender: FDA-Public Use
  Company Number: US-ABBVIE-4268612

PATIENT
  Age: 62 Year
  Sex: Female
  Weight: 72.574 kg

DRUGS (1)
  1. HUMIRA [Suspect]
     Active Substance: ADALIMUMAB
     Indication: Psoriasis
     Route: 058
     Dates: start: 2021, end: 2022

REACTIONS (4)
  - Knee operation [Recovered/Resolved]
  - Back pain [Not Recovered/Not Resolved]
  - Rheumatoid arthritis [Not Recovered/Not Resolved]
  - Hip surgery [Recovered/Resolved]

NARRATIVE: CASE EVENT DATE: 20210701
